FAERS Safety Report 4736019-0 (Version None)
Quarter: 2005Q3

REPORT INFORMATION
  Report Type: 
  Country: None (occurrence: None)
  Receive Date: 20050805
  Receipt Date: 20050408
  Transmission Date: 20060218
  Serious: Yes (Hospitalization)
  Sender: FDA-Public Use
  Company Number: US-MERCK-0504USA01320

PATIENT
  Age: 65 Year
  Sex: Female
  Weight: 90 kg

DRUGS (1)
  1. VIOXX [Suspect]
     Indication: GOUT
     Route: 048
     Dates: start: 20030101, end: 20040101

REACTIONS (11)
  - ADVERSE EVENT [None]
  - ATRIAL FIBRILLATION [None]
  - CARDIAC FAILURE CONGESTIVE [None]
  - COMA [None]
  - CORONARY ARTERY DISEASE [None]
  - DEPRESSION [None]
  - HYPERTENSION [None]
  - MEMORY IMPAIRMENT [None]
  - MYOCARDIAL INFARCTION [None]
  - RENAL DISORDER [None]
  - SIGHT DISABILITY [None]
